FAERS Safety Report 19892698 (Version 2)
Quarter: 2021Q4

REPORT INFORMATION
  Report Type: Report from Study
  Country: RU (occurrence: RU)
  Receive Date: 20210928
  Receipt Date: 20211018
  Transmission Date: 20220303
  Serious: Yes (Hospitalization, Other)
  Sender: FDA-Public Use
  Company Number: RU-BRISTOL-MYERS SQUIBB COMPANY-BMS-2021-075995

PATIENT
  Age: 43 Year
  Sex: Female

DRUGS (2)
  1. BEMPEGALDESLEUKIN [Suspect]
     Active Substance: BEMPEGALDESLEUKIN
     Indication: Malignant melanoma
     Dosage: 0.48 MILLIGRAM
     Route: 042
     Dates: start: 20210630, end: 20210630
  2. NIVOLUMAB [Suspect]
     Active Substance: NIVOLUMAB
     Indication: Malignant melanoma
     Dosage: 360 MILLIGRAM
     Route: 042
     Dates: start: 20210630, end: 20210630

REACTIONS (2)
  - Immune-mediated neuropathy [Not Recovered/Not Resolved]
  - Thyroiditis [Not Recovered/Not Resolved]

NARRATIVE: CASE EVENT DATE: 20210719
